FAERS Safety Report 10344813 (Version 2)
Quarter: 2014Q3

REPORT INFORMATION
  Report Type: Spontaneous
  Country: GB (occurrence: None)
  Receive Date: 20140724
  Receipt Date: 20140811
  Transmission Date: 20150326
  Serious: Yes (Hospitalization)
  Sender: FDA-Public Use
  Company Number: AUR-APL-2014-07836

PATIENT
  Age: 39 Year
  Sex: Female

DRUGS (5)
  1. RUSCUS ACULEATUS [Suspect]
     Active Substance: RUSCUS ACULEATUS ROOT
     Indication: JOINT SWELLING
  2. METFORMIN [Suspect]
     Active Substance: METFORMIN HYDROCHLORIDE
     Indication: DIABETES MELLITUS
     Route: 048
  3. NOVORAPID [Concomitant]
     Active Substance: INSULIN ASPART
  4. LEVEMIR [Concomitant]
     Active Substance: INSULIN DETEMIR
  5. RUSCUS ACULEATUS [Suspect]
     Active Substance: RUSCUS ACULEATUS ROOT
     Indication: CARDIOVASCULAR DISORDER

REACTIONS (13)
  - Blood potassium increased [None]
  - Blood gases abnormal [None]
  - Electrocardiogram T wave abnormal [None]
  - Diarrhoea [None]
  - Vomiting [None]
  - Hyperglycaemia [None]
  - Respiratory rate increased [None]
  - Joint swelling [None]
  - Neutrophilia [None]
  - Dehydration [None]
  - Diabetic ketoacidosis [None]
  - White blood cell count increased [None]
  - Heart rate increased [None]
